FAERS Safety Report 11972658 (Version 1)
Quarter: 2016Q1

REPORT INFORMATION
  Report Type: Report from Study
  Country: DE (occurrence: DE)
  Receive Date: 20160128
  Receipt Date: 20160128
  Transmission Date: 20160526
  Serious: Yes (Death, Hospitalization)
  Sender: FDA-Public Use
  Company Number: DE-CELGENE-062-21880-08061579

PATIENT
  Age: 76 Year
  Sex: Female
  Weight: 62 kg

DRUGS (3)
  1. FORTECORTIN [Concomitant]
     Active Substance: DEXAMETHASONE
     Route: 065
     Dates: start: 20080617, end: 20080620
  2. REVLIMID [Suspect]
     Active Substance: LENALIDOMIDE
     Indication: PLASMACYTOMA
     Dosage: 15 MILLIGRAM
     Route: 048
     Dates: start: 20080609, end: 20080620
  3. FORTECORTIN [Concomitant]
     Active Substance: DEXAMETHASONE
     Indication: PLASMACYTOMA
     Route: 065
     Dates: start: 20080609, end: 20080612

REACTIONS (3)
  - Spinal pain [Not Recovered/Not Resolved]
  - Death [Fatal]
  - Leukopenia [Fatal]

NARRATIVE: CASE EVENT DATE: 20080621
